FAERS Safety Report 10626720 (Version 1)
Quarter: 2014Q4

REPORT INFORMATION
  Report Type: Spontaneous
  Country: CH (occurrence: CH)
  Receive Date: 20141204
  Receipt Date: 20141204
  Transmission Date: 20150529
  Serious: Yes (Other)
  Sender: FDA-Public Use
  Company Number: CH-BAYER-2014-175269

PATIENT
  Age: 74 Year
  Sex: Female

DRUGS (7)
  1. VI-DE 3 [Concomitant]
     Dosage: 800 IU, QD
  2. BRUFEN [Interacting]
     Active Substance: IBUPROFEN
     Indication: DRESSLER^S SYNDROME
     Dosage: 600 MG, TID
     Route: 048
     Dates: start: 201405, end: 201410
  3. EZETROL [Concomitant]
     Active Substance: EZETIMIBE
     Dosage: 10 MG, QD
     Route: 048
  4. FLUOXETINE [Concomitant]
     Active Substance: FLUOXETINE\FLUOXETINE HYDROCHLORIDE
     Dosage: 20 MG, QD
     Route: 048
  5. ESOMEPRAZOLE [Concomitant]
     Active Substance: ESOMEPRAZOLE
     Dosage: 40 MG, QID
     Route: 048
  6. COLCHICINE. [Concomitant]
     Active Substance: COLCHICINE
     Dosage: 1.5 MG, QD
     Route: 048
  7. ASPIRIN CARDIO [Suspect]
     Active Substance: ASPIRIN
     Dosage: 100 MG, QD
     Route: 048

REACTIONS (2)
  - Ischaemic stroke [Recovered/Resolved]
  - Labelled drug-drug interaction medication error [Recovered/Resolved]

NARRATIVE: CASE EVENT DATE: 201405
